FAERS Safety Report 9269067 (Version 3)
Quarter: 2019Q1

REPORT INFORMATION
  Report Type: Spontaneous
  Country: FR (occurrence: FR)
  Receive Date: 20130503
  Receipt Date: 20190220
  Transmission Date: 20190418
  Serious: Yes (Death)
  Sender: FDA-Public Use
  Company Number: FR-ROCHE-1217640

PATIENT
  Age: 39 Year
  Sex: Female
  Weight: 79 kg

DRUGS (11)
  1. PIPERACILLIN SODIUM [Suspect]
     Active Substance: PIPERACILLIN SODIUM
     Indication: ESCHERICHIA INFECTION
     Route: 042
     Dates: start: 20130212, end: 20130403
  2. CELLCEPT [Suspect]
     Active Substance: MYCOPHENOLATE MOFETIL\MYCOPHENOLATE MOFETIL HYDROCHLORIDE
     Indication: GRAFT VERSUS HOST DISEASE
     Route: 065
     Dates: start: 20130320
  3. CYMEVAN [Suspect]
     Active Substance: GANCICLOVIR
     Indication: CYTOMEGALOVIRUS INFECTION
     Route: 042
     Dates: start: 20130330
  4. BUSILVEX [Concomitant]
     Active Substance: BUSULFAN
  5. CANCIDAS [Suspect]
     Active Substance: CASPOFUNGIN ACETATE
     Indication: GASTROINTESTINAL CANDIDIASIS
     Route: 065
     Dates: start: 20130328
  6. INEXIUM [Suspect]
     Active Substance: ESOMEPRAZOLE
     Indication: GASTROOESOPHAGEAL REFLUX DISEASE
     Route: 048
     Dates: start: 20130318, end: 20130401
  7. TAZOBACTAM SODIUM [Suspect]
     Active Substance: TAZOBACTAM SODIUM
     Indication: ESCHERICHIA INFECTION
     Route: 042
     Dates: start: 20130212, end: 20130403
  8. ENDOXAN [Concomitant]
     Active Substance: CYCLOPHOSPHAMIDE
  9. NOXAFIL [Suspect]
     Active Substance: POSACONAZOLE
     Indication: GASTROINTESTINAL CANDIDIASIS
     Route: 048
     Dates: start: 20130314, end: 20130328
  10. SOLIRIS [Suspect]
     Active Substance: ECULIZUMAB
     Indication: HAEMOLYTIC URAEMIC SYNDROME
     Dosage: MOST RECENT DOSE ON 05/APR/2013
     Route: 042
     Dates: start: 20130327
  11. FOSCAVIR [Suspect]
     Active Substance: FOSCARNET SODIUM
     Indication: CYTOMEGALOVIRUS INFECTION
     Route: 065
     Dates: start: 20130319, end: 20130329

REACTIONS (1)
  - Bone marrow failure [Fatal]

NARRATIVE: CASE EVENT DATE: 20130329
